FAERS Safety Report 8419316-7 (Version None)
Quarter: 2012Q2

REPORT INFORMATION
  Report Type: 
  Country: None (occurrence: None)
  Receive Date: 20120607
  Receipt Date: 20120531
  Transmission Date: 20120825
  Serious: Yes (Other)
  Sender: FDA-Public Use
  Company Number: BR-ROCHE-728131

PATIENT
  Sex: Female
  Weight: 74 kg

DRUGS (23)
  1. ACTEMRA [Suspect]
     Dosage: FORM: INFUSION
     Route: 042
  2. AMYTRIL [Concomitant]
  3. LORAX [Concomitant]
     Indication: INSOMNIA
  4. OMEPRAZOLE [Concomitant]
  5. ACTEMRA [Suspect]
     Indication: RHEUMATOID ARTHRITIS
     Dosage: FORM: INFUSION.
     Route: 042
     Dates: start: 20100714, end: 20100714
  6. ACTEMRA [Suspect]
     Route: 042
     Dates: start: 20100909, end: 20100909
  7. ACTEMRA [Suspect]
     Dosage: LATEST TOCILIZUMAB DOSE 18 FEBRUARY 2011
     Route: 042
  8. FOLIC ACID [Concomitant]
  9. FLUOXETINE [Concomitant]
  10. BAMIFIX [Concomitant]
  11. ACTEMRA [Suspect]
     Route: 042
     Dates: start: 20101222, end: 20101222
  12. PREDNISOLONE [Concomitant]
     Indication: RHEUMATOID ARTHRITIS
  13. LOSARTAN [Concomitant]
  14. ZETRON [Concomitant]
  15. ACTEMRA [Suspect]
     Route: 042
     Dates: start: 20100812, end: 20100812
  16. ISONIAZID [Concomitant]
  17. ACTEMRA [Suspect]
     Route: 042
     Dates: start: 20101124, end: 20101124
  18. METHOTREXATE [Concomitant]
  19. PROPRANOLOL [Concomitant]
  20. FERROUS SULFATE TAB [Concomitant]
     Dosage: FREQ: ONCE PER DAY
  21. IRON [Concomitant]
  22. VITAMIN B COMPLEX CAP [Concomitant]
  23. PREDNISONE [Concomitant]
     Dosage: ON THE FOLLOWING DAY

REACTIONS (15)
  - WHITE BLOOD CELL COUNT INCREASED [None]
  - PNEUMONIA [None]
  - DYSPNOEA [None]
  - URINARY TRACT INFECTION [None]
  - VOMITING [None]
  - HEADACHE [None]
  - ALOPECIA [None]
  - TUBERCULIN TEST POSITIVE [None]
  - DECREASED APPETITE [None]
  - INFLUENZA [None]
  - EAR INFECTION [None]
  - INSOMNIA [None]
  - NAUSEA [None]
  - FATIGUE [None]
  - THERAPEUTIC RESPONSE DECREASED [None]
